FAERS Safety Report 9829247 (Version 1)
Quarter: 2014Q1

REPORT INFORMATION
  Report Type: Report from Study
  Country: US (occurrence: US)
  Receive Date: 20140120
  Receipt Date: 20140120
  Transmission Date: 20141002
  Serious: Yes (Other)
  Sender: FDA-Public Use
  Company Number: US-ROCHE-1333670

PATIENT
  Age: 9 Year
  Sex: Female
  Weight: 22.5 kg

DRUGS (1)
  1. NUTROPIN [Suspect]
     Indication: GROWTH RETARDATION
     Route: 058

REACTIONS (2)
  - Overgrowth bacterial [Unknown]
  - Myalgia [Unknown]
